FAERS Safety Report 18068456 (Version 2)
Quarter: 2020Q3

REPORT INFORMATION
  Report Type: Spontaneous
  Country: US (occurrence: US)
  Receive Date: 20200724
  Receipt Date: 20200819
  Transmission Date: 20201103
  Serious: Yes (Life-Threatening, Hospitalization, Other)
  Sender: FDA-Public Use
  Company Number: US-SUNOVION-2020SUN002158

PATIENT
  Age: 56 Year
  Sex: Female

DRUGS (2)
  1. LATUDA [Suspect]
     Active Substance: LURASIDONE HYDROCHLORIDE
     Indication: BIPOLAR II DISORDER
     Dosage: STARTED 3 YEARS AGO, STOPPED 2 YEARS AGO
     Route: 048
     Dates: start: 2017, end: 2018
  2. LATUDA [Suspect]
     Active Substance: LURASIDONE HYDROCHLORIDE
     Indication: BIPOLAR DISORDER

REACTIONS (18)
  - Gastrointestinal disorder [Unknown]
  - Trismus [Recovered/Resolved]
  - Speech disorder [Unknown]
  - Cognitive disorder [Unknown]
  - Transient ischaemic attack [Unknown]
  - Fear [Recovered/Resolved]
  - Cardiac arrest [Unknown]
  - Mental status changes [Unknown]
  - Anxiety [Unknown]
  - Off label use [Unknown]
  - Feeling abnormal [Unknown]
  - Amnesia [Unknown]
  - Fear-related avoidance of activities [Recovered/Resolved]
  - Body temperature abnormal [Unknown]
  - Seizure [Unknown]
  - Hypoglycaemia [Unknown]
  - Motor dysfunction [Unknown]
  - Vision blurred [Unknown]

NARRATIVE: CASE EVENT DATE: 201901
